FAERS Safety Report 7183897-4 (Version None)
Quarter: 2010Q4

REPORT INFORMATION
  Report Type: 
  Country: None (occurrence: None)
  Receive Date: 20101222
  Receipt Date: 20101206
  Transmission Date: 20110411
  Serious: Yes (Hospitalization)
  Sender: FDA-Public Use
  Company Number: JP-ROCHE-747468

PATIENT
  Sex: Female
  Weight: 54.5 kg

DRUGS (22)
  1. TOCILIZUMAB [Suspect]
     Indication: RHEUMATOID ARTHRITIS
     Dosage: DISCONTINUED.
     Route: 042
     Dates: start: 20100804, end: 20101027
  2. PLACEBO [Suspect]
     Indication: RHEUMATOID ARTHRITIS
     Dosage: DISCONTINUED.
     Route: 058
     Dates: start: 20100804, end: 20101027
  3. PREDNISOLONE [Suspect]
     Indication: RHEUMATOID ARTHRITIS
     Dosage: GIVEN AS 1X 5MG AND 1X 2 MG TABLETS
     Route: 048
  4. VOLTAREN [Concomitant]
     Dosage: NOTE: BEGINNING OF DOSAGE DAY: BEFORE FOUR INVESTIGATIONAL AGENT ADMINISTERING WEEKS-
     Route: 048
  5. GASTER D [Concomitant]
     Dosage: NOTE: BEGINNING OF DOSAGE DAY: BEFORE FOUR INVESTIGATIONAL AGENT ADMINISTERING WEEKS-
     Route: 048
  6. KETOPROFEN [Concomitant]
     Dosage: BEGINNING OF DOSAGE DAY: BEFORE FOUR INVESTIGATIONAL AGENT SINGLE USE AND PROPER QUANTITY
     Route: 061
  7. KETOPROFEN [Concomitant]
     Dosage: BEGINNING OF DOSAGE DAY: BEFORE FOUR INVESTIGATIONAL AGENT SINGLE USE AND PROPER QUANTITY
     Route: 061
  8. AMARYL [Concomitant]
     Dosage: NOTE: BEGINNING OF DOSAGE DAY: BEFORE FOUR INVESTIGATIONAL AGENT ADMINISTERING WEEKS-
     Route: 048
  9. BASEN [Concomitant]
     Dosage: NOTE: BEGINNING OF DOSAGE DAY: BEFORE FOUR INVESTIGATIONAL AGENT ADMINISTERING WEEKS-
     Route: 048
  10. MELBIN [Concomitant]
     Dosage: NOTE: BEGINNING OF DOSAGE DAY: BEFORE FOUR INVESTIGATIONAL AGENT ADMINISTERING WEEKS-
     Route: 048
  11. EVISTA [Concomitant]
     Dosage: NOTE: BEGINNING OF DOSAGE DAY: BEFORE FOUR INVESTIGATIONAL AGENT ADMINISTERING WEEKS-
     Route: 048
  12. LIPITOR [Concomitant]
     Dosage: NOTE: BEGINNING OF DOSAGE DAY: BEFORE FOUR INVESTIGATIONAL AGENT ADMINISTERING WEEKS-
     Route: 048
  13. ASPIRIN [Concomitant]
     Dosage: NOTE: BEGINNING OF DOSAGE DAY: BEFORE FOUR INVESTIGATIONAL AGENT ADMINISTERING WEEKS
     Route: 048
  14. BLOPRESS [Concomitant]
     Dosage: NOTE: BEGINNING OF DOSAGE DAY: BEFORE FOUR INVESTIGATIONAL AGENT ADMINISTERING WEEKS-
     Route: 048
  15. MAGNESIUM [Concomitant]
     Route: 048
     Dates: start: 20101013, end: 20101115
  16. TRIAZOLAM [Concomitant]
     Dosage: REPORTED AS MINZAIN. BEGINNING OF DOSAGE DAY: BEFORE FOUR INVESTIGATIONAL AGENT ADMINISTERING WEEKS.
     Route: 048
     Dates: end: 20101115
  17. MAGLAX [Concomitant]
     Dosage: NOTE: BEGINNING OF DOSAGE DAY: BEFORE FOUR INVESTIGATIONAL AGENT ADMINISTERING WEEKS-
     Route: 048
  18. LENDORMIN [Concomitant]
     Dosage: NOTE: BEGINNING OF DOSAGE DAY: BEFORE FOUR INVESTIGATIONAL AGENT ADMINISTERING WEEKS
     Route: 048
  19. SENNA EXTRACT [Concomitant]
     Dosage: DRUG: YODEL-S(SENNA EXTRACT)
     Route: 048
     Dates: start: 20101104
  20. NOLVADEX [Concomitant]
     Dosage: NOTE: BEGINNING OF DOSAGE DAY: BEFORE FOUR INVESTIGATIONAL AGENT ADMINISTERING WEEKS-
     Route: 048
  21. PURSENNID [Concomitant]
     Dosage: NOTE: BEGINNING OF DOSAGE DAY: BEFORE FOUR INVESTIGATIONAL AGENT ADMINISTERING WEEKS-
     Route: 048
     Dates: end: 20101103
  22. NORVASC [Concomitant]
     Route: 048

REACTIONS (1)
  - LUMBAR VERTEBRAL FRACTURE [None]
